FAERS Safety Report 22590158 (Version 6)
Quarter: 2024Q4

REPORT INFORMATION
  Report Type: Spontaneous
  Country: US (occurrence: US)
  Receive Date: 20230612
  Receipt Date: 20241107
  Transmission Date: 20250115
  Serious: Yes (Hospitalization)
  Sender: PFIZER
  Company Number: US-PFIZER INC-PV202300080692

PATIENT
  Age: 68 Year
  Sex: Male
  Weight: 63.5 kg

DRUGS (3)
  1. BRAFTOVI [Suspect]
     Active Substance: ENCORAFENIB
     Indication: Colon cancer stage IV
     Dosage: 75 MG, 1X/DAY
     Route: 048
     Dates: start: 2023
  2. BRAFTOVI [Suspect]
     Active Substance: ENCORAFENIB
     Dosage: TAKE 4 TABLETS DAILY FOR TOTAL DOSE OF 300 MG DAILY
     Route: 048
  3. ERBITUX [Concomitant]
     Active Substance: CETUXIMAB
     Indication: Colon cancer stage IV
     Dosage: CYCLIC (EVERY COUPLE OF WEEKS)
     Dates: start: 2023

REACTIONS (11)
  - Feeling abnormal [Unknown]
  - Fatigue [Not Recovered/Not Resolved]
  - Pain [Not Recovered/Not Resolved]
  - Arthralgia [Not Recovered/Not Resolved]
  - Bursitis [Not Recovered/Not Resolved]
  - Tendonitis [Not Recovered/Not Resolved]
  - Malaise [Unknown]
  - Nasopharyngitis [Unknown]
  - Influenza like illness [Unknown]
  - Arthralgia [Unknown]
  - Joint range of motion decreased [Unknown]

NARRATIVE: CASE EVENT DATE: 20230101
